FAERS Safety Report 11993395 (Version 1)
Quarter: 2016Q1

REPORT INFORMATION
  Report Type: Spontaneous
  Country: US (occurrence: US)
  Receive Date: 20160203
  Receipt Date: 20160203
  Transmission Date: 20160526
  Serious: No
  Sender: FDA-Public Use
  Company Number: US-BAYER-2016-021301

PATIENT
  Sex: Female

DRUGS (2)
  1. LOTRIMIN ULTRA ANTIFUNGAL [Suspect]
     Active Substance: BUTENAFINE HYDROCHLORIDE
     Dosage: UNK
  2. TINACTIN [Suspect]
     Active Substance: TOLNAFTATE
     Dosage: UNK

REACTIONS (2)
  - Product use issue [None]
  - Drug ineffective [None]
